FAERS Safety Report 9676411 (Version 1)
Quarter: 2013Q4

REPORT INFORMATION
  Report Type: Spontaneous
  Country: US (occurrence: None)
  Receive Date: 20131106
  Receipt Date: 20131106
  Transmission Date: 20140711
  Serious: Yes (Death)
  Sender: FDA-Public Use
  Company Number: UTC-039829

PATIENT
  Age: 57 Year
  Sex: Female
  Weight: 67.27 kg

DRUGS (3)
  1. TYVASO [Suspect]
     Indication: PULMONARY ARTERIAL HYPERTENSION
     Dosage: 18-72 MCG (4 IN 1 D),INHALATION
     Route: 055
     Dates: start: 20130723
  2. REVATIO (SILDENAFIL) CITRATE (UNKNOWN) [Concomitant]
  3. TRACLEER (BOSENTAN) (UNKNOWN) [Concomitant]

REACTIONS (1)
  - Death [None]
